FAERS Safety Report 6387110-7 (Version None)
Quarter: 2009Q4

REPORT INFORMATION
  Report Type: 
  Country: None (occurrence: None)
  Receive Date: 20091002
  Receipt Date: 20090925
  Transmission Date: 20100525
  Serious: Yes (Other)
  Sender: FDA-Public Use
  Company Number: US-WATSON-2009-08004

PATIENT
  Age: 58 Year
  Sex: Female

DRUGS (1)
  1. HYDRALAZINE (WATSON LABORATORIES) [Suspect]
     Indication: DRUG USE FOR UNKNOWN INDICATION
     Dosage: 150 MG, UNK

REACTIONS (1)
  - VASCULITIS NECROTISING [None]
